FAERS Safety Report 4778711-8 (Version None)
Quarter: 2005Q3

REPORT INFORMATION
  Report Type: 
  Country: None (occurrence: None)
  Receive Date: 20050926
  Receipt Date: 20050718
  Transmission Date: 20060218
  Serious: Yes (Death, Hospitalization)
  Sender: FDA-Public Use
  Company Number: 200512385FR

PATIENT
  Age: 80 Year
  Sex: Male

DRUGS (3)
  1. AMAREL [Suspect]
     Indication: DIABETES MELLITUS NON-INSULIN-DEPENDENT
     Route: 048
     Dates: end: 20050621
  2. NISIS [Suspect]
     Indication: ESSENTIAL HYPERTENSION
     Route: 048
  3. TENORMIN [Concomitant]
     Route: 048

REACTIONS (23)
  - ACINETOBACTER INFECTION [None]
  - CHOLESTASIS [None]
  - CONFUSIONAL STATE [None]
  - DUODENAL STENOSIS [None]
  - ENTEROCOCCAL SEPSIS [None]
  - GASTROINTESTINAL DISORDER [None]
  - KLEBSIELLA INFECTION [None]
  - METABOLIC ACIDOSIS [None]
  - MULTI-ORGAN FAILURE [None]
  - NECROSIS [None]
  - PANCREATITIS ACUTE [None]
  - PANCREATITIS NECROTISING [None]
  - PATHOGEN RESISTANCE [None]
  - PNEUMOCOCCAL INFECTION [None]
  - PSEUDOMONAL SEPSIS [None]
  - QUADRIPARESIS [None]
  - RENAL FAILURE ACUTE [None]
  - RENAL TUBULAR NECROSIS [None]
  - RESPIRATORY DISORDER [None]
  - RESPIRATORY DISTRESS [None]
  - RESPIRATORY FAILURE [None]
  - SHOCK [None]
  - VOMITING [None]
